FAERS Safety Report 19213367 (Version 3)
Quarter: 2021Q2

REPORT INFORMATION
  Report Type: Report from Study
  Country: US (occurrence: US)
  Receive Date: 20210504
  Receipt Date: 20210618
  Transmission Date: 20210717
  Serious: No
  Sender: FDA-Public Use
  Company Number: NVSC2021US100161

PATIENT
  Age: 49 Year
  Sex: Female

DRUGS (1)
  1. ENTRESTO [Suspect]
     Active Substance: SACUBITRIL\VALSARTAN
     Indication: CARDIAC FAILURE
     Dosage: 50 MG, BID
     Route: 048
     Dates: start: 202009

REACTIONS (4)
  - Fatigue [Unknown]
  - Product dose omission in error [Unknown]
  - Weight decreased [Unknown]
  - Food poisoning [Recovered/Resolved]

NARRATIVE: CASE EVENT DATE: 20210429
